FAERS Safety Report 15660799 (Version 1)
Quarter: 2018Q4

REPORT INFORMATION
  Report Type: Spontaneous
  Country: US (occurrence: US)
  Receive Date: 20181116
  Receipt Date: 20181116
  Transmission Date: 20190205
  Serious: Yes (Hospitalization)
  Sender: FDA-Public Use
  Company Number: None

PATIENT
  Age: 57 Year
  Sex: Female

DRUGS (4)
  1. LEVOTHYROXINE. [Concomitant]
     Active Substance: LEVOTHYROXINE
  2. TAMOXIFEN 20MG [Suspect]
     Active Substance: TAMOXIFEN
     Indication: BREAST CANCER
     Dosage: ?          OTHER FREQUENCY:EVERY MORNING;?
     Route: 048
     Dates: start: 20170315
  3. ALBUTEROL. [Concomitant]
     Active Substance: ALBUTEROL
  4. PROLIA [Concomitant]
     Active Substance: DENOSUMAB

REACTIONS (3)
  - Dizziness [None]
  - Paraesthesia [None]
  - Bronchitis [None]

NARRATIVE: CASE EVENT DATE: 20181110
